FAERS Safety Report 4440576-1 (Version None)
Quarter: 2004Q3

REPORT INFORMATION
  Report Type: 
  Country: None (occurrence: None)
  Receive Date: 20040903
  Receipt Date: 20040824
  Transmission Date: 20050211
  Serious: Yes (Hospitalization)
  Sender: FDA-Public Use
  Company Number: FR-ROCHE-378357

PATIENT
  Age: 13 Year
  Sex: Male

DRUGS (5)
  1. CELLCEPT [Suspect]
     Indication: NEPHROTIC SYNDROME
     Route: 048
     Dates: start: 20010615
  2. CELLCEPT [Suspect]
     Dosage: DOSAGE WAS LOWERED.
     Route: 048
     Dates: start: 20040115
  3. IBUPROFENE [Suspect]
     Indication: NASOPHARYNGITIS
     Route: 048
     Dates: start: 20040515
  4. ZECLAR [Suspect]
     Indication: NASOPHARYNGITIS
     Route: 048
     Dates: start: 20040515
  5. CORTANCYL [Suspect]
     Indication: NEPHROTIC SYNDROME
     Route: 048
     Dates: start: 20040115

REACTIONS (5)
  - DISEASE RECURRENCE [None]
  - OLIGURIA [None]
  - PHARYNGITIS [None]
  - PRIAPISM [None]
  - RHINORRHOEA [None]
